FAERS Safety Report 12716754 (Version 1)
Quarter: 2016Q3

REPORT INFORMATION
  Report Type: Spontaneous
  Country: US (occurrence: US)
  Receive Date: 20160906
  Receipt Date: 20160906
  Transmission Date: 20161109
  Serious: Yes (Other)
  Sender: FDA-Public Use
  Company Number: US-ASTELLAS-2016US033842

PATIENT
  Age: 65 Year
  Sex: Female

DRUGS (1)
  1. CRESEMBA [Suspect]
     Active Substance: ISAVUCONAZONIUM SULFATE
     Indication: ASPERGILLUS INFECTION
     Dosage: 372 MG, ONCE DAILY (186 MG 2 CAPSULES DAILY)
     Route: 065
     Dates: start: 201607

REACTIONS (4)
  - Somnolence [Unknown]
  - Neoplasm malignant [Unknown]
  - Lung operation [Unknown]
  - Fatigue [Unknown]

NARRATIVE: CASE EVENT DATE: 201608
